FAERS Safety Report 5430403-8 (Version None)
Quarter: 2007Q3

REPORT INFORMATION
  Report Type: 
  Country: None (occurrence: None)
  Receive Date: 20070828
  Receipt Date: 20070816
  Transmission Date: 20080115
  Serious: Yes (Other)
  Sender: FDA-Public Use
  Company Number: 2007BI015191

PATIENT
  Age: 30 Year
  Sex: Female

DRUGS (2)
  1. NATALIZUMAB [Suspect]
     Indication: MULTIPLE SCLEROSIS
     Dosage: 300 MG;QM;IV
     Route: 042
     Dates: start: 20050101, end: 20050101
  2. NATALIZUMAB [Suspect]
     Indication: MULTIPLE SCLEROSIS
     Dosage: 300 MG;QM;IV
     Route: 042
     Dates: start: 20070601, end: 20070713

REACTIONS (9)
  - ANAPHYLACTIC REACTION [None]
  - BACK PAIN [None]
  - CHEST PAIN [None]
  - DYSGEUSIA [None]
  - FEELING ABNORMAL [None]
  - FLUSHING [None]
  - SYNCOPE [None]
  - URTICARIA [None]
  - VOMITING [None]
